FAERS Safety Report 21388677 (Version 2)
Quarter: 2022Q4

REPORT INFORMATION
  Report Type: Spontaneous
  Country: US (occurrence: US)
  Receive Date: 20220928
  Receipt Date: 20221108
  Transmission Date: 20230113
  Serious: No
  Sender: FDA-Public Use
  Company Number: US-BAUSCHBL-2022BNL000621

PATIENT
  Age: 82 Year
  Sex: Female

DRUGS (1)
  1. BRIMONIDINE TARTRATE [Suspect]
     Active Substance: BRIMONIDINE TARTRATE
     Indication: Glaucoma
     Route: 047
     Dates: start: 202202, end: 20220920

REACTIONS (5)
  - Intraocular pressure increased [Unknown]
  - Eyelid exfoliation [Unknown]
  - Asthenopia [Unknown]
  - Somnolence [Unknown]
  - Instillation site erythema [Unknown]

NARRATIVE: CASE EVENT DATE: 20220101
